FAERS Safety Report 9155667 (Version 1)
Quarter: 2013Q1

REPORT INFORMATION
  Report Type: Spontaneous
  Country: US (occurrence: US)
  Receive Date: 20130311
  Receipt Date: 20130311
  Transmission Date: 20140127
  Serious: No
  Sender: FDA-Public Use
  Company Number: US-ASTRAZENECA-2013SE07936

PATIENT
  Age: 60 Year
  Sex: Female
  Weight: 90.7 kg

DRUGS (9)
  1. NEXIUM [Suspect]
     Indication: GASTROOESOPHAGEAL REFLUX DISEASE
     Route: 048
     Dates: start: 2003
  2. PROZAC [Concomitant]
  3. XANAX [Concomitant]
  4. SINGULAIR [Concomitant]
     Indication: ASTHMA
  5. ZYRTEC [Concomitant]
     Indication: MULTIPLE ALLERGIES
  6. VENTOLIN [Concomitant]
  7. COMBIVENT [Concomitant]
  8. FLOVENT [Concomitant]
  9. FLONASE [Concomitant]

REACTIONS (4)
  - Gastrooesophageal reflux disease [Recovered/Resolved]
  - Influenza [Recovered/Resolved]
  - Therapeutic response unexpected [Recovered/Resolved]
  - Intentional drug misuse [Unknown]
